FAERS Safety Report 5672900-6 (Version None)
Quarter: 2008Q1

REPORT INFORMATION
  Report Type: 
  Country: None (occurrence: None)
  Receive Date: 20080319
  Receipt Date: 20071127
  Transmission Date: 20080703
  Serious: No
  Sender: FDA-Public Use
  Company Number: US-ASTRAZENECA-2007UW27144

PATIENT
  Age: 76 Year
  Sex: Male
  Weight: 84.8 kg

DRUGS (7)
  1. SYMBICORT [Suspect]
     Indication: ASTHMA
     Dosage: 80/4.5 UG
     Route: 055
  2. DIOVAN [Concomitant]
  3. METFORMIN HCL [Concomitant]
  4. HYDRALAZINE HCL [Concomitant]
  5. CENTRUM [Concomitant]
  6. AZITHROMYCIN [Concomitant]
  7. AMOXICILLIN [Concomitant]

REACTIONS (1)
  - ARTHRALGIA [None]
